FAERS Safety Report 6074342-0 (Version None)
Quarter: 2009Q1

REPORT INFORMATION
  Report Type: 
  Country: None (occurrence: None)
  Receive Date: 20090211
  Receipt Date: 20090210
  Transmission Date: 20090719
  Serious: Yes (Death)
  Sender: FDA-Public Use
  Company Number: JP-B.I. PHARMACEUTICALS,INC./RIDGEFIELD-2008-BP-03918NB

PATIENT
  Sex: Male
  Weight: 61 kg

DRUGS (6)
  1. ASPIRIN [Suspect]
     Indication: CEREBROVASCULAR ACCIDENT PROPHYLAXIS
     Route: 048
     Dates: start: 20061125, end: 20080218
  2. BASEN OD [Concomitant]
     Indication: DIABETES MELLITUS
     Dosage: .9MG
     Route: 048
     Dates: start: 20070316, end: 20080218
  3. TAKEPRON [Concomitant]
     Indication: GASTRITIS PROPHYLAXIS
     Dosage: 15MG
     Route: 048
     Dates: start: 20061003, end: 20080218
  4. OLMETEC [Concomitant]
     Indication: HYPERTENSION
     Dosage: 20MG
     Route: 048
     Dates: start: 20070511, end: 20080218
  5. NORVASC [Concomitant]
     Indication: HYPERTENSION
     Dosage: 5MG
     Route: 048
     Dates: end: 20080218
  6. ENALAPRIL MALEATE [Concomitant]
     Indication: HYPERTENSION
     Dosage: 10MG
     Route: 048
     Dates: end: 20080218

REACTIONS (1)
  - SUBARACHNOID HAEMORRHAGE [None]
